FAERS Safety Report 4908645-7 (Version None)
Quarter: 2006Q1

REPORT INFORMATION
  Report Type: 
  Country: None (occurrence: None)
  Receive Date: 20060210
  Receipt Date: 20050927
  Transmission Date: 20060701
  Serious: No
  Sender: FDA-Public Use
  Company Number: US-GLAXOSMITHKLINE-A0576040A

PATIENT
  Age: 58 Year
  Sex: Female

DRUGS (2)
  1. PAXIL CR [Suspect]
     Indication: PANIC DISORDER
     Dosage: 12.5MG PER DAY
     Route: 048
     Dates: start: 20050301, end: 20050920
  2. ULTRACET [Concomitant]

REACTIONS (2)
  - EMOTIONAL DISORDER [None]
  - NERVOUSNESS [None]
